FAERS Safety Report 8562713-X (Version None)
Quarter: 2012Q3

REPORT INFORMATION
  Report Type: 
  Country: None (occurrence: None)
  Receive Date: 20120802
  Receipt Date: 20120716
  Transmission Date: 20120928
  Serious: Yes (Hospitalization)
  Sender: FDA-Public Use
  Company Number: US-AMGEN-USASP2012044075

PATIENT
  Age: 57 Year
  Sex: Male

DRUGS (1)
  1. ENBREL [Suspect]
     Indication: PSORIATIC ARTHROPATHY
     Dosage: 50 MG, QWK
     Dates: start: 20030101

REACTIONS (4)
  - STAPHYLOCOCCAL OSTEOMYELITIS [None]
  - ACCIDENT AT WORK [None]
  - INJURY [None]
  - MOBILITY DECREASED [None]
